FAERS Safety Report 7824246-5 (Version None)
Quarter: 2011Q4

REPORT INFORMATION
  Report Type: 
  Country: None (occurrence: None)
  Receive Date: 20111019
  Receipt Date: 20111013
  Transmission Date: 20120403
  Serious: Yes (Other)
  Sender: FDA-Public Use
  Company Number: DE-PFIZER INC-2011246215

PATIENT
  Age: 68 Year
  Sex: Male

DRUGS (3)
  1. SUTENT [Suspect]
     Indication: METASTATIC RENAL CELL CARCINOMA
     Dosage: 37.5 MG, 1X/DAY
     Route: 048
     Dates: start: 20110101, end: 20110701
  2. SUTENT [Suspect]
     Dosage: 50 MG, 1X/DAY
     Route: 048
  3. RAMIPRIL [Concomitant]

REACTIONS (4)
  - PLEURAL EFFUSION [None]
  - OEDEMA PERIPHERAL [None]
  - DYSPNOEA [None]
  - PALMAR-PLANTAR ERYTHRODYSAESTHESIA SYNDROME [None]
